FAERS Safety Report 9728293 (Version 2)
Quarter: 2014Q1

REPORT INFORMATION
  Report Type: Spontaneous
  Country: GB (occurrence: GB)
  Receive Date: 20131204
  Receipt Date: 20140120
  Transmission Date: 20141002
  Serious: Yes (Other)
  Sender: FDA-Public Use
  Company Number: GB-DRREDDYS-GER/UKI/13/0036030

PATIENT
  Age: 32 Year
  Sex: Female

DRUGS (12)
  1. OLANZAPINE [Suspect]
     Indication: PRODUCT USED FOR UNKNOWN INDICATION
     Dates: start: 20120112, end: 20120114
  2. CHLORPROMAZINE [Suspect]
     Indication: SCHIZOPHRENIA, PARANOID TYPE
     Dates: start: 20120109, end: 20120114
  3. CHLORPROMAZINE [Suspect]
     Dates: start: 20111215, end: 20111219
  4. HALOPERIDOL [Suspect]
     Indication: SCHIZOPHRENIA, PARANOID TYPE
     Route: 048
     Dates: start: 20120105, end: 20120109
  5. HALOPERIDOL [Suspect]
     Route: 048
     Dates: start: 20111229, end: 20120104
  6. RISPERDAL [Suspect]
     Indication: SCHIZOPHRENIA, PARANOID TYPE
     Route: 048
     Dates: start: 20120308, end: 20120609
  7. RISPERDAL [Suspect]
     Route: 048
     Dates: start: 20120609, end: 20120821
  8. RISPERDAL [Suspect]
     Dosage: 3 MG IN THE MORNING AND 4 MG AT NIGHT
     Route: 048
     Dates: start: 20120221, end: 20120307
  9. ZOPICLONE [Suspect]
     Indication: INSOMNIA
     Dates: start: 20120210, end: 20120718
  10. PROMETHAZINE [Concomitant]
     Indication: PRODUCT USED FOR UNKNOWN INDICATION
     Dates: start: 20111216
  11. SENNA [Concomitant]
     Indication: PRODUCT USED FOR UNKNOWN INDICATION
     Dates: start: 20120116
  12. CYCLIZINE [Concomitant]
     Indication: PRODUCT USED FOR UNKNOWN INDICATION
     Dates: start: 20111228, end: 20120131

REACTIONS (3)
  - Schizoaffective disorder [Unknown]
  - Blood iron decreased [Unknown]
  - Exposure during pregnancy [Unknown]
